FAERS Safety Report 6270062-8 (Version None)
Quarter: 2009Q3

REPORT INFORMATION
  Report Type: 
  Country: None (occurrence: None)
  Receive Date: 20090716
  Receipt Date: 20090707
  Transmission Date: 20100115
  Serious: Yes (Other)
  Sender: FDA-Public Use
  Company Number: US-JNJFOC-20090703367

PATIENT
  Age: 74 Year
  Sex: Male
  Weight: 65.77 kg

DRUGS (1)
  1. EXTRA STRENGTH TYLENOL [Suspect]
     Indication: INSOMNIA
     Route: 048

REACTIONS (1)
  - URETHRAL CANCER [None]
